FAERS Safety Report 7760368-5 (Version None)
Quarter: 2011Q3

REPORT INFORMATION
  Report Type: 
  Country: None (occurrence: None)
  Receive Date: 20110919
  Receipt Date: 20110914
  Transmission Date: 20111222
  Serious: Yes (Hospitalization)
  Sender: FDA-Public Use
  Company Number: PHHO2011GB15727

PATIENT
  Sex: Male

DRUGS (3)
  1. ZOLEDRONIC [Suspect]
     Indication: METASTASES TO BONE
     Dosage: UNK
     Route: 042
     Dates: start: 20110908, end: 20110908
  2. PREDNISOLONE [Concomitant]
     Dosage: UNK
     Dates: start: 20110908, end: 20110908
  3. DOCETAXEL [Suspect]
     Indication: METASTASES TO BONE
     Dosage: UNK
     Dates: start: 20110908, end: 20110908

REACTIONS (1)
  - LOWER RESPIRATORY TRACT INFECTION [None]
